FAERS Safety Report 9701504 (Version 1)
Quarter: 2013Q4

REPORT INFORMATION
  Report Type: Spontaneous
  Country: US (occurrence: US)
  Receive Date: 20131121
  Receipt Date: 20131121
  Transmission Date: 20140711
  Serious: Yes (Hospitalization, Other)
  Sender: FDA-Public Use
  Company Number: US-MYLANLABS-2013S1017341

PATIENT
  Age: 68 Year
  Sex: Male

DRUGS (2)
  1. AMIODARONE HYDROCHLORIDE INJECTION [Suspect]
     Route: 042
     Dates: start: 2013
  2. LISINOPRIL [Concomitant]

REACTIONS (1)
  - Pulmonary fibrosis [Not Recovered/Not Resolved]
